FAERS Safety Report 8144001-9 (Version None)
Quarter: 2012Q1

REPORT INFORMATION
  Report Type: 
  Country: None (occurrence: None)
  Receive Date: 20120217
  Receipt Date: 20120217
  Transmission Date: 20120608
  Serious: Yes (Hospitalization)
  Sender: FDA-Public Use
  Company Number: None

PATIENT
  Age: 16 Year
  Sex: Female
  Weight: 87.09 kg

DRUGS (1)
  1. CYTARABINE [Suspect]
     Indication: LANGERHANS' CELL HISTIOCYTOSIS
     Dosage: 285 MG
     Route: 042
     Dates: start: 20120130, end: 20120202

REACTIONS (1)
  - PYREXIA [None]
